FAERS Safety Report 17614610 (Version 6)
Quarter: 2020Q3

REPORT INFORMATION
  Report Type: Report from Study
  Country: US (occurrence: US)
  Receive Date: 20200402
  Receipt Date: 20200804
  Transmission Date: 20201102
  Serious: Yes (Other)
  Sender: FDA-Public Use
  Company Number: NVSC2020US087551

PATIENT
  Age: 50 Year
  Sex: Male

DRUGS (1)
  1. COSENTYX [Suspect]
     Active Substance: SECUKINUMAB
     Indication: PSORIASIS
     Dosage: UNK
     Route: 065

REACTIONS (6)
  - Hypersomnia [Unknown]
  - Asthenia [Unknown]
  - Libido decreased [Unknown]
  - Erectile dysfunction [Unknown]
  - Psoriasis [Unknown]
  - Fatigue [Unknown]
